APPROVED DRUG PRODUCT: LORAZEPAM INTENSOL
Active Ingredient: LORAZEPAM
Strength: 2MG/ML
Dosage Form/Route: CONCENTRATE;ORAL
Application: A072755 | Product #001 | TE Code: AA
Applicant: HIKMA PHARMACEUTICALS USA INC
Approved: Jun 28, 1991 | RLD: No | RS: Yes | Type: RX